FAERS Safety Report 10929704 (Version 1)
Quarter: 2015Q1

REPORT INFORMATION
  Report Type: Spontaneous
  Country: BR (occurrence: BR)
  Receive Date: 20150319
  Receipt Date: 20150319
  Transmission Date: 20150721
  Serious: Yes (Other)
  Sender: FDA-Public Use
  Company Number: BR-PFIZER INC-2015097118

PATIENT
  Age: 99 Year
  Sex: Female

DRUGS (3)
  1. QUEOPINE [Suspect]
     Active Substance: QUETIAPINE FUMARATE
     Dosage: UNK
  2. EFFEXOR XR [Suspect]
     Active Substance: VENLAFAXINE HYDROCHLORIDE
     Dosage: UNK
  3. ANCORON [Suspect]
     Active Substance: AMIODARONE HYDROCHLORIDE
     Dosage: UNK

REACTIONS (4)
  - Time perception altered [Unknown]
  - Eating disorder [Unknown]
  - Walking disability [Unknown]
  - Mental impairment [Unknown]
